FAERS Safety Report 10758877 (Version 2)
Quarter: 2015Q1

REPORT INFORMATION
  Report Type: Spontaneous
  Country: US (occurrence: US)
  Receive Date: 20150203
  Receipt Date: 20150226
  Transmission Date: 20150721
  Serious: No
  Sender: FDA-Public Use
  Company Number: US-BAYER-2015-014784

PATIENT
  Sex: Female

DRUGS (2)
  1. SKYLA [Suspect]
     Active Substance: LEVONORGESTREL
     Indication: CONTRACEPTION
     Dosage: UNK
     Route: 015
     Dates: start: 20150122, end: 20150123
  2. BETADINE [Concomitant]
     Active Substance: POVIDONE-IODINE

REACTIONS (3)
  - Vulvovaginal swelling [None]
  - Drug hypersensitivity [None]
  - Device expulsion [None]

NARRATIVE: CASE EVENT DATE: 201501
